FAERS Safety Report 18505349 (Version 1)
Quarter: 2020Q4

REPORT INFORMATION
  Report Type: Spontaneous
  Country: CN (occurrence: CN)
  Receive Date: 20201116
  Receipt Date: 20201116
  Transmission Date: 20210114
  Serious: Yes (Hospitalization)
  Sender: FDA-Public Use
  Company Number: CN-DRREDDYS-GPV/CHN/20/0128949

PATIENT
  Age: 48 Year
  Sex: Male
  Weight: 50 kg

DRUGS (14)
  1. OLANZAPINE. [Suspect]
     Active Substance: OLANZAPINE
     Dosage: REDUCED TO 15 MG/DAY, 10 MG IN THE MORNING AND 5 MG IN THE EVENING, 2 TIMES
     Route: 048
     Dates: start: 20200830, end: 20200830
  2. OLANZAPINE. [Suspect]
     Active Substance: OLANZAPINE
     Dosage: 5.000000MG,QD
     Route: 048
     Dates: start: 20200930, end: 20201004
  3. OLANZAPINE. [Suspect]
     Active Substance: OLANZAPINE
     Dosage: 5.000000MG,QD
     Route: 048
     Dates: start: 20200928, end: 20200929
  4. RISPERIDONE TABLETS [Suspect]
     Active Substance: RISPERIDONE
     Dosage: 1.000000MG,BID
     Route: 048
     Dates: start: 20200930, end: 20201003
  5. OLANZAPINE. [Suspect]
     Active Substance: OLANZAPINE
     Indication: BIPOLAR DISORDER
     Route: 048
     Dates: start: 20200714, end: 20200718
  6. OLANZAPINE. [Suspect]
     Active Substance: OLANZAPINE
     Dosage: 10MG TWICE A DAY
     Route: 048
     Dates: start: 20200824, end: 20200829
  7. OLANZAPINE. [Suspect]
     Active Substance: OLANZAPINE
     Dosage: REDUCED TO 7.5 MG/DAY, DIVIDED INTO 5 MG IN THE MORNING AND 2.5 MG IN THE EVENING, PO, BID
     Route: 048
     Dates: start: 20200921, end: 20200927
  8. OLANZAPINE. [Suspect]
     Active Substance: OLANZAPINE
     Dosage: DIVIDED INTO 10 MG IN THE MORNING AND 5 MG IN THE EVENING ORALLY, TWICE A DAY
     Route: 048
     Dates: start: 20200719, end: 20200823
  9. OLANZAPINE. [Suspect]
     Active Substance: OLANZAPINE
     Dosage: REDUCED TO 10 MG/DAY, 5 MG IN THE MORNING AND 5 MG IN THE EVENING, ORALLY, TWICE A DAY
     Route: 048
     Dates: start: 20200831, end: 20200920
  10. RISPERIDONE TABLETS [Suspect]
     Active Substance: RISPERIDONE
     Dosage: 1.000000MG,BID
     Route: 048
     Dates: end: 20201014
  11. LITHIUM CARBONATE TABLETS [Concomitant]
     Indication: PRODUCT USED FOR UNKNOWN INDICATION
     Dosage: 0.250000G,BID
     Route: 048
     Dates: start: 20200714, end: 20201103
  12. RISPERIDONE TABLETS [Suspect]
     Active Substance: RISPERIDONE
     Indication: BIPOLAR DISORDER
     Dosage: 1.500, 000 MG TWICE DAILY
     Route: 048
     Dates: start: 20201004, end: 20201006
  13. RISPERIDONE TABLETS [Suspect]
     Active Substance: RISPERIDONE
     Dosage: 1.000000MG,BID
     Route: 048
     Dates: start: 20201007
  14. PROMETHAZINE HYDROCHLORIDE TABLETS [Concomitant]
     Active Substance: PROMETHAZINE HYDROCHLORIDE
     Indication: PRODUCT USED FOR UNKNOWN INDICATION
     Dosage: 12.500, 000 MG TWICE DAILY
     Route: 048
     Dates: start: 20201015, end: 20201103

REACTIONS (4)
  - Drug intolerance [Recovering/Resolving]
  - Tremor [Recovering/Resolving]
  - Gait disturbance [Recovering/Resolving]
  - Blood creatine phosphokinase increased [Recovering/Resolving]

NARRATIVE: CASE EVENT DATE: 20200830
